FAERS Safety Report 7276620-6 (Version None)
Quarter: 2011Q1

REPORT INFORMATION
  Report Type: 
  Country: None (occurrence: None)
  Receive Date: 20110204
  Receipt Date: 20110126
  Transmission Date: 20110831
  Serious: Yes (Other)
  Sender: FDA-Public Use
  Company Number: BR-BAYER-2011-008673

PATIENT
  Sex: Female
  Weight: 51 kg

DRUGS (3)
  1. MIRENA [Suspect]
     Dosage: 20 ?G, CONT
     Dates: start: 20100501
  2. MIRENA [Suspect]
     Dosage: 20 ?G, CONT
     Dates: start: 20090101, end: 20100501
  3. MIRENA [Suspect]
     Indication: ENDOMETRIOSIS
     Dosage: 20 ?G, CONT
     Route: 015
     Dates: start: 20030101, end: 20090101

REACTIONS (5)
  - BACK PAIN [None]
  - ABDOMINAL PAIN LOWER [None]
  - AMENORRHOEA [None]
  - SYNCOPE [None]
  - MENORRHAGIA [None]
